FAERS Safety Report 20604651 (Version 5)
Quarter: 2023Q1

REPORT INFORMATION
  Report Type: Report from Study
  Country: KR (occurrence: KR)
  Receive Date: 20220316
  Receipt Date: 20230305
  Transmission Date: 20230417
  Serious: Yes (Death, Life-Threatening, Hospitalization, Other)
  Sender: FDA-Public Use
  Company Number: KR-ABBVIE-22K-090-4318332-00

PATIENT
  Age: 75 Year
  Sex: Male
  Weight: 86 kg

DRUGS (52)
  1. VENETOCLAX [Suspect]
     Active Substance: VENETOCLAX
     Indication: Acute myeloid leukaemia
     Route: 048
     Dates: start: 20211124, end: 20211124
  2. VENETOCLAX [Suspect]
     Active Substance: VENETOCLAX
     Indication: Acute myeloid leukaemia
     Route: 048
     Dates: start: 20211125, end: 20211125
  3. VENETOCLAX [Suspect]
     Active Substance: VENETOCLAX
     Indication: Acute myeloid leukaemia
     Route: 048
     Dates: start: 20211126, end: 20211126
  4. VENETOCLAX [Suspect]
     Active Substance: VENETOCLAX
     Indication: Acute myeloid leukaemia
     Route: 048
     Dates: start: 20211128, end: 20220302
  5. VENETOCLAX [Suspect]
     Active Substance: VENETOCLAX
     Indication: Acute myeloid leukaemia
     Route: 048
     Dates: start: 20211124, end: 20211124
  6. MAGMIL 500MG [Concomitant]
     Indication: Constipation
     Dosage: TIME INTERVAL: 0.33333333 DAYS
     Route: 048
     Dates: start: 20211122, end: 20211129
  7. LASIX [Concomitant]
     Active Substance: FUROSEMIDE
     Indication: Blood creatinine increased
     Route: 042
     Dates: start: 20220313, end: 20220313
  8. LASIX [Concomitant]
     Active Substance: FUROSEMIDE
     Indication: Blood creatinine increased
     Route: 042
     Dates: start: 20220311, end: 20220312
  9. FURTMAN 2ML [Concomitant]
     Indication: Prophylaxis
     Route: 042
     Dates: start: 20220310, end: 20220313
  10. GODEX CAP [Concomitant]
     Indication: Gamma-glutamyltransferase increased
     Dosage: TIME INTERVAL: 0.33333333 DAYS
     Route: 048
     Dates: start: 20220204, end: 20220214
  11. MACPERAN 2ML [Concomitant]
     Indication: Constipation
     Route: 042
     Dates: start: 20211126, end: 20211130
  12. Hydrine [Concomitant]
     Indication: Acute myeloid leukaemia
     Route: 048
     Dates: start: 20211122, end: 20211125
  13. OLMESARTAN MEDOXOMIL [Concomitant]
     Active Substance: OLMESARTAN MEDOXOMIL
     Indication: Hypertension
     Route: 048
     Dates: start: 20211122, end: 20220208
  14. VACRAX 200MG [Concomitant]
     Indication: Prophylaxis
     Route: 048
     Dates: start: 20211124, end: 20220302
  15. NORVASC [Concomitant]
     Active Substance: AMLODIPINE BESYLATE
     Indication: Hypertension
     Route: 048
     Dates: start: 20211122, end: 20220302
  16. NOXAFIL100MG [Concomitant]
     Indication: Prophylaxis
     Dosage: GASTRO RESISTANT
     Route: 048
     Dates: start: 20211124, end: 20211214
  17. HARNAL D 0.2MG [Concomitant]
     Indication: Benign prostatic hyperplasia
     Route: 048
     Dates: start: 20211215, end: 20220209
  18. YUHAN 3 CHAMBER FOMS PERI 952ML [Concomitant]
     Indication: Prophylaxis
     Route: 042
  19. Cravit 500MG [Concomitant]
     Indication: Prophylaxis
     Route: 048
     Dates: start: 20211202, end: 20220302
  20. ACETYLCYSTEINE [Concomitant]
     Active Substance: ACETYLCYSTEINE
     Indication: Prophylaxis
     Dosage: 100MG/ML 3ML/A
     Route: 042
     Dates: start: 20220310, end: 20220314
  21. RESOLOR 1MG [Concomitant]
     Indication: Constipation
     Route: 048
     Dates: start: 20211124, end: 20220302
  22. VITAMINS [Concomitant]
     Active Substance: VITAMINS
     Indication: Prophylaxis
     Dosage: 1 VIAL
     Route: 042
     Dates: start: 20220310, end: 20220313
  23. Dulackhan easy [Concomitant]
     Indication: Constipation
     Route: 048
     Dates: start: 20220119, end: 20220206
  24. Fasturtec 1.5MG [Concomitant]
     Indication: Prophylaxis
     Dosage: INJECTION
     Route: 042
     Dates: start: 20220207, end: 20220207
  25. SINGULAIR [Concomitant]
     Active Substance: MONTELUKAST SODIUM
     Indication: Asthma
     Route: 048
     Dates: start: 20211129, end: 20220302
  26. ULTRACET ER SEMI [Concomitant]
     Indication: Back pain
     Route: 048
     Dates: start: 20211121, end: 20220214
  27. VANCOCIN CP 1G [Concomitant]
     Indication: Pyrexia
     Route: 042
     Dates: start: 20220207, end: 20220209
  28. AGIO 6G [Concomitant]
     Indication: Constipation
     Dosage: TIME INTERVAL: AS NECESSARY
     Route: 048
     Dates: start: 20211128, end: 20211225
  29. ZYLORIC 100MG [Concomitant]
     Indication: Prophylaxis
     Route: 048
     Dates: start: 20211122, end: 20211210
  30. ZYLORIC 100MG [Concomitant]
     Indication: Prophylaxis
     Route: 048
     Dates: start: 20220310, end: 20220313
  31. ZYLORIC 100MG [Concomitant]
     Indication: Prophylaxis
     Route: 048
     Dates: start: 20220203, end: 20220208
  32. SULFAMETHOXAZOLE\TRIMETHOPRIM [Concomitant]
     Active Substance: SULFAMETHOXAZOLE\TRIMETHOPRIM
     Indication: Prophylaxis
     Route: 048
     Dates: start: 20211124, end: 20220302
  33. OMAPONE PERI 724ML [Concomitant]
     Indication: Decreased appetite
     Route: 042
     Dates: start: 20211214, end: 20211217
  34. HEPA MERZ [Concomitant]
     Indication: Liver function test increased
     Dosage: INJECTION/500MG/5ML
     Route: 042
     Dates: start: 20211125, end: 20211202
  35. HEPA MERZ [Concomitant]
     Indication: Liver function test increased
     Dosage: INJECTION
     Route: 042
     Dates: start: 20220311, end: 20220313
  36. PROPACETAMOL HYDROCHLORIDE [Concomitant]
     Active Substance: PROPACETAMOL HYDROCHLORIDE
     Indication: Pyrexia
     Dosage: INJECTION
     Route: 042
     Dates: start: 20220310, end: 20220315
  37. PROPACETAMOL HYDROCHLORIDE [Concomitant]
     Active Substance: PROPACETAMOL HYDROCHLORIDE
     Indication: Pyrexia
     Dosage: INJECTION
     Route: 042
     Dates: start: 20220203, end: 20220206
  38. PROPACETAMOL HYDROCHLORIDE [Concomitant]
     Active Substance: PROPACETAMOL HYDROCHLORIDE
     Indication: Pyrexia
     Dosage: INJECTION
     Route: 042
     Dates: start: 20211121, end: 20211129
  39. VIZADAKIN [Concomitant]
     Indication: Acute myeloid leukaemia
     Route: 042
     Dates: start: 20211124, end: 20211130
  40. VIZADAKIN [Concomitant]
     Indication: Acute myeloid leukaemia
     Route: 042
     Dates: start: 20220203, end: 20220209
  41. COMP URSA [Concomitant]
     Indication: Gamma-glutamyltransferase increased
     Dosage: TIME INTERVAL: 0.33333333 DAYS
     Route: 048
     Dates: start: 20220204, end: 20220214
  42. RELVAR 100 ELLIPTA [Concomitant]
     Indication: Asthma
     Dosage: TIME INTERVAL: AS NECESSARY
     Route: 055
     Dates: start: 20211126, end: 20220302
  43. NASERON 0.3MG [Concomitant]
     Indication: Prophylaxis
     Dosage: AMP
     Route: 048
     Dates: start: 20211124, end: 20220209
  44. DULCOLAX NOS [Concomitant]
     Active Substance: BISACODYL OR DOCUSATE SODIUM
     Indication: Constipation
     Route: 054
     Dates: start: 20211125, end: 20211129
  45. TYLICOL [Concomitant]
     Indication: Product used for unknown indication
     Route: 042
     Dates: start: 20220310, end: 20220315
  46. MAXIPIME 1G [Concomitant]
     Indication: Pyrexia
     Dosage: TIME INTERVAL: 0.33333333 DAYS
     Route: 042
     Dates: start: 20220310, end: 20220314
  47. MAXIPIME 1G [Concomitant]
     Indication: Pyrexia
     Dosage: TIME INTERVAL: 0.33333333 DAYS
     Route: 042
     Dates: start: 20220204, end: 20220209
  48. MAXIPIME 1G [Concomitant]
     Indication: Pyrexia
     Dosage: TIME INTERVAL: 0.33333333 DAYS
     Route: 042
     Dates: start: 20211120, end: 20211201
  49. DIFLUCAN 50MG [Concomitant]
     Indication: Prophylaxis
     Route: 048
     Dates: start: 20211222, end: 20220302
  50. FOLIC ACID SINIL 1MG [Concomitant]
     Indication: Anaemia
     Route: 048
     Dates: start: 20220104, end: 20220118
  51. NALOXONE HYDROCHLORIDE\OXYCODONE HYDROCHLORIDE [Concomitant]
     Active Substance: NALOXONE HYDROCHLORIDE\OXYCODONE HYDROCHLORIDE
     Indication: Pain in extremity
     Dosage: PR 5/2.5MG
     Route: 048
     Dates: start: 20220112, end: 20220209
  52. POTASSIUM [Concomitant]
     Active Substance: POTASSIUM
     Indication: Blood potassium decreased
     Dosage: 1BOTTLE?20MEQ/NS100 ML
     Route: 042
     Dates: start: 20211124, end: 20211127

REACTIONS (1)
  - Cerebral infarction [Fatal]

NARRATIVE: CASE EVENT DATE: 20220310
